FAERS Safety Report 9917458 (Version 1)
Quarter: 2014Q1

REPORT INFORMATION
  Report Type: Spontaneous
  Country: US (occurrence: US)
  Receive Date: 20140221
  Receipt Date: 20140221
  Transmission Date: 20141002
  Serious: No
  Sender: FDA-Public Use
  Company Number: US-PFIZER INC-2014048935

PATIENT
  Sex: Female

DRUGS (11)
  1. XELJANZ [Suspect]
     Indication: RHEUMATOID ARTHRITIS
     Dosage: 5 MG, 2X/DAY
     Route: 048
     Dates: start: 201309
  2. XELJANZ [Suspect]
     Dosage: 5 MG, 1X/DAY
     Route: 048
  3. HUMIRA [Suspect]
     Dosage: 40MG
  4. EFFEXOR-XR [Concomitant]
     Dosage: 150 MG, UNK
  5. RESTASIS [Concomitant]
     Dosage: 0.05%
     Route: 047
  6. NEURONTIN [Concomitant]
     Dosage: 600 MG
  7. FLEXERIL [Concomitant]
     Dosage: 10 MG
  8. ZETIA [Concomitant]
     Dosage: 10 MG
  9. SALSALATE [Concomitant]
     Dosage: 750 MG CAPLET
  10. IMURAN [Concomitant]
     Dosage: 50 MG
  11. ALBUTEROL SULFATE HFA [Concomitant]
     Dosage: 90 UG
     Route: 055

REACTIONS (1)
  - Drug hypersensitivity [Unknown]
